FAERS Safety Report 14398047 (Version 1)
Quarter: 2018Q1

REPORT INFORMATION
  Report Type: Spontaneous
  Country: US (occurrence: US)
  Receive Date: 20180116
  Receipt Date: 20180116
  Transmission Date: 20180509
  Serious: No
  Sender: FDA-Public Use
  Company Number: US-ALLERGAN-1769292US

PATIENT
  Age: 48 Year
  Sex: Female

DRUGS (3)
  1. JUVEDERM [Concomitant]
     Active Substance: HYALURONIC ACID
     Dosage: UNKNOWN
     Route: 065
     Dates: start: 201709, end: 201709
  2. BOTOX COSMETIC [Suspect]
     Active Substance: ONABOTULINUMTOXINA
     Indication: SKIN WRINKLING
     Dosage: 14 UNITS, SINGLE
     Route: 030
     Dates: start: 201709, end: 201709
  3. BOTOX COSMETIC [Suspect]
     Active Substance: ONABOTULINUMTOXINA
     Indication: SKIN WRINKLING

REACTIONS (4)
  - Facial asymmetry [Recovered/Resolved]
  - Headache [Recovered/Resolved]
  - Eyelid ptosis [Recovered/Resolved]
  - Photophobia [Recovered/Resolved]

NARRATIVE: CASE EVENT DATE: 201709
